FAERS Safety Report 5082122-8 (Version None)
Quarter: 2006Q3

REPORT INFORMATION
  Report Type: 
  Country: None (occurrence: None)
  Receive Date: 20060817
  Receipt Date: 20060817
  Transmission Date: 20061208
  Serious: Yes (Other)
  Sender: FDA-Public Use
  Company Number: None

PATIENT
  Age: 4 Year
  Sex: Male
  Weight: 15.4 kg

DRUGS (5)
  1. ISONIAZID [Suspect]
     Indication: ANTIBIOTIC PROPHYLAXIS
     Dosage: 150MG QDAY PO
     Route: 048
     Dates: start: 20060219, end: 20060616
  2. PYRIDOXINE HCL [Concomitant]
  3. PULMICORT [Concomitant]
  4. ALBUTEROL [Concomitant]
  5. SODIUM FLUORIDE [Concomitant]

REACTIONS (8)
  - ABDOMINAL PAIN [None]
  - BALANCE DISORDER [None]
  - CLUMSINESS [None]
  - FATIGUE [None]
  - FEELING COLD [None]
  - PRURITUS [None]
  - TACHYCARDIA [None]
  - TREATMENT NONCOMPLIANCE [None]
